FAERS Safety Report 24955982 (Version 1)
Quarter: 2025Q1

REPORT INFORMATION
  Report Type: Spontaneous
  Country: US (occurrence: US)
  Receive Date: 20250211
  Receipt Date: 20250211
  Transmission Date: 20250408
  Serious: No
  Sender: BAXTER
  Company Number: US-BAXTER-2025BAX011150

PATIENT

DRUGS (3)
  1. INSULIN NOS [Suspect]
     Active Substance: INSULIN NOS
     Route: 065
     Dates: start: 20250117, end: 20250122
  2. INSULIN NOS [Suspect]
     Active Substance: INSULIN NOS
     Route: 065
     Dates: start: 20250121, end: 20250121
  3. INSULIN NOS [Suspect]
     Active Substance: INSULIN NOS
     Route: 065
     Dates: start: 20250121, end: 20250122

REACTIONS (1)
  - Blood glucose increased [Unknown]
